FAERS Safety Report 13251684 (Version 1)
Quarter: 2017Q1

REPORT INFORMATION
  Report Type: Spontaneous
  Country: US (occurrence: US)
  Receive Date: 20170220
  Receipt Date: 20170220
  Transmission Date: 20170428
  Serious: No
  Sender: FDA-Public Use
  Company Number: US-LUNDBECK-DKLU2022404

PATIENT
  Sex: Female

DRUGS (2)
  1. NORTHERA [Suspect]
     Active Substance: DROXIDOPA
     Dosage: TITRATION SCHEDULE 3-4?MORNING-MIDDAY AND LATER AFTERNOON 3 HRS PRIOR TO BED
     Route: 065
  2. NORTHERA [Suspect]
     Active Substance: DROXIDOPA
     Indication: AUTONOMIC NEUROPATHY
     Dosage: TITRATION SCHEDULE DAY 1-2?MORNING-MIDDAY AND LATER AFTERNOON 3 HRS PRIOR TO BED
     Route: 065
     Dates: start: 201611

REACTIONS (1)
  - Dizziness [Unknown]
